FAERS Safety Report 21460906 (Version 3)
Quarter: 2023Q2

REPORT INFORMATION
  Report Type: Report from Study
  Country: US (occurrence: US)
  Receive Date: 20221015
  Receipt Date: 20230419
  Transmission Date: 20230721
  Serious: No
  Sender: FDA-Public Use
  Company Number: US-ABBVIE-22K-163-4501614-00

PATIENT
  Sex: Male

DRUGS (2)
  1. RINVOQ [Suspect]
     Active Substance: UPADACITINIB
     Indication: Rheumatoid arthritis
     Route: 048
     Dates: start: 20220820
  2. RINVOQ [Suspect]
     Active Substance: UPADACITINIB
     Indication: Rheumatoid arthritis
     Route: 048

REACTIONS (9)
  - Gastric disorder [Unknown]
  - Hypotension [Unknown]
  - Norovirus infection [Unknown]
  - Cardiac disorder [Unknown]
  - Sinus disorder [Unknown]
  - Influenza [Unknown]
  - Sinusitis [Unknown]
  - Weight decreased [Unknown]
  - Decreased appetite [Unknown]
